APPROVED DRUG PRODUCT: DESLORATADINE
Active Ingredient: DESLORATADINE
Strength: 5MG
Dosage Form/Route: TABLET;ORAL
Application: A078365 | Product #001 | TE Code: AB
Applicant: DR REDDYS LABORATORIES LTD
Approved: Mar 8, 2011 | RLD: No | RS: No | Type: RX